FAERS Safety Report 10708946 (Version 2)
Quarter: 2015Q1

REPORT INFORMATION
  Report Type: Spontaneous
  Country: US (occurrence: US)
  Receive Date: 20150114
  Receipt Date: 20150205
  Transmission Date: 20150721
  Serious: Yes (Other)
  Sender: FDA-Public Use
  Company Number: US-AUROBINDO-AUR-APL-2015-00109

PATIENT
  Age: 73 Year
  Sex: Female

DRUGS (7)
  1. CYCLOBENZAPRINE [Concomitant]
     Active Substance: CYCLOBENZAPRINE
     Indication: PRODUCT USED FOR UNKNOWN INDICATION
     Dosage: 5 MG, AT BED TIME
     Route: 065
     Dates: start: 2006
  2. MELOXICAM. [Concomitant]
     Active Substance: MELOXICAM
     Indication: PRODUCT USED FOR UNKNOWN INDICATION
     Dosage: 7.45 MG, EVERY DAY BEFORE NOON
     Route: 065
     Dates: start: 2008
  3. GABAPENTIN ACTAVIS [Suspect]
     Active Substance: GABAPENTIN
     Indication: MULTIPLE SCLEROSIS
     Dosage: 300 MG, 3 TIMES A DAY
     Route: 048
     Dates: start: 20140814, end: 20141116
  4. BACLOFEN. [Concomitant]
     Active Substance: BACLOFEN
     Indication: PRODUCT USED FOR UNKNOWN INDICATION
     Dosage: 5 TO 10 MG THREE TIMES A DAY
     Route: 065
     Dates: start: 2006
  5. GABAPENTIN CAPSULES 300 MG [Suspect]
     Active Substance: GABAPENTIN
     Indication: MULTIPLE SCLEROSIS
     Dosage: 300 MG, 3 TIMES A DAY
     Route: 048
     Dates: start: 201407, end: 20140809
  6. TRAMADOL [Concomitant]
     Active Substance: TRAMADOL
     Indication: PRODUCT USED FOR UNKNOWN INDICATION
     Dosage: 50 MG, 3 TIMES A DAY
     Route: 065
     Dates: start: 2006
  7. CLONAZEPAM. [Concomitant]
     Active Substance: CLONAZEPAM
     Indication: PRODUCT USED FOR UNKNOWN INDICATION
     Dosage: 1 MG, AT BED TIME
     Route: 065
     Dates: start: 2006

REACTIONS (6)
  - Choking [Recovered/Resolved]
  - Dyskinesia [Unknown]
  - Dysphagia [Recovered/Resolved]
  - Bruxism [Not Recovered/Not Resolved]
  - Pain [Unknown]
  - Product substitution issue [Unknown]

NARRATIVE: CASE EVENT DATE: 20140803
